FAERS Safety Report 5517554-4 (Version None)
Quarter: 2007Q4

REPORT INFORMATION
  Report Type: 
  Country: None (occurrence: None)
  Receive Date: 20071114
  Receipt Date: 20071102
  Transmission Date: 20080405
  Serious: Yes (Other)
  Sender: FDA-Public Use
  Company Number: US-PFIZER INC-2007085082

PATIENT
  Sex: Female
  Weight: 80.7 kg

DRUGS (3)
  1. CHANTIX [Suspect]
     Indication: SMOKING CESSATION THERAPY
     Dates: start: 20050101, end: 20060101
  2. NICOTINE [Concomitant]
  3. LIPITOR [Concomitant]

REACTIONS (3)
  - BRAIN NEOPLASM [None]
  - NAUSEA [None]
  - WEIGHT DECREASED [None]
